FAERS Safety Report 18916138 (Version 1)
Quarter: 2021Q1

REPORT INFORMATION
  Report Type: Other
  Country: US (occurrence: US)
  Receive Date: 20210219
  Receipt Date: 20210219
  Transmission Date: 20210420
  Serious: No
  Sender: FDA-Public Use
  Company Number: US-ROCHE-2570754

PATIENT
  Sex: Female

DRUGS (1)
  1. OCREVUS [Suspect]
     Active Substance: OCRELIZUMAB
     Indication: RELAPSING MULTIPLE SCLEROSIS
     Dosage: DATE OF TREATMENT 02/MAR/2018 , 16/MAR/2018 ,27/SEP/2018 , 29/MAR/2019, 29/SEP/2019, 12/OCT/2020, 17
     Route: 065
     Dates: start: 20180302

REACTIONS (4)
  - Bronchitis [Not Recovered/Not Resolved]
  - Off label use [Unknown]
  - Influenza [Recovered/Resolved]
  - Intentional product misuse [Unknown]
